FAERS Safety Report 24676554 (Version 1)
Quarter: 2024Q4

REPORT INFORMATION
  Report Type: Report from Study
  Country: US (occurrence: US)
  Receive Date: 20241128
  Receipt Date: 20241128
  Transmission Date: 20250114
  Serious: Yes (Other)
  Sender: JOHNSON AND JOHNSON
  Company Number: US-ABBVIE-6011372

PATIENT
  Sex: Female

DRUGS (1)
  1. IMBRUVICA [Suspect]
     Active Substance: IBRUTINIB
     Indication: Chronic lymphocytic leukaemia
     Route: 048
     Dates: start: 2018

REACTIONS (10)
  - Oral discomfort [Recovered/Resolved]
  - Hypertension [Unknown]
  - Fatigue [Unknown]
  - Fall [Unknown]
  - Pain [Unknown]
  - Clumsiness [Unknown]
  - Asthenia [Unknown]
  - Hair growth abnormal [Recovered/Resolved]
  - Rheumatoid arthritis [Recovered/Resolved]
  - Nail growth abnormal [Recovered/Resolved]
